FAERS Safety Report 8240877-5 (Version None)
Quarter: 2012Q1

REPORT INFORMATION
  Report Type: 
  Country: None (occurrence: None)
  Receive Date: 20120328
  Receipt Date: 20120323
  Transmission Date: 20120608
  Serious: Yes (Other)
  Sender: FDA-Public Use
  Company Number: US-BAYER-200827427NA

PATIENT
  Age: 59 Year
  Sex: Female
  Weight: 109 kg

DRUGS (54)
  1. MAGNEVIST [Suspect]
     Indication: NUCLEAR MAGNETIC RESONANCE IMAGING
     Dates: start: 19980824, end: 19980824
  2. EPOGEN [Concomitant]
  3. NEPHROCAPS [Concomitant]
  4. PREDNISONE TAB [Concomitant]
  5. PLAVIX [Concomitant]
  6. CELEBREX [Concomitant]
  7. DIATX [Concomitant]
  8. COLACE [Concomitant]
  9. MAGNEVIST [Suspect]
  10. OPTIMARK [Suspect]
     Indication: ANGIOGRAM
  11. GADOLINIUM IN UNSPECIFIED DRUG [Suspect]
     Dates: start: 19980706, end: 19980706
  12. SENSIPAR [Concomitant]
  13. ZEMPLAR [Concomitant]
  14. TIMOLOL MALEATE [Concomitant]
  15. ZOCOR [Concomitant]
  16. PERCOCET [Concomitant]
  17. IBUPROFEN [Concomitant]
  18. GADOLINIUM IN UNSPECIFIED DRUG [Suspect]
     Dosage: UNK
     Dates: start: 20070801, end: 20070801
  19. LEVOTHYROXINE SODIUM [Concomitant]
  20. RENAGEL [Concomitant]
  21. EPOGEN [Concomitant]
  22. PROHANCE [Suspect]
     Indication: NUCLEAR MAGNETIC RESONANCE IMAGING
  23. CILOSTAZOL [Concomitant]
  24. PRILOSEC [Concomitant]
  25. OMNISCAN [Suspect]
     Indication: NUCLEAR MAGNETIC RESONANCE IMAGING
  26. MULTIHANCE [Suspect]
     Indication: NUCLEAR MAGNETIC RESONANCE IMAGING
  27. IRON [IRON] [Concomitant]
  28. MYCOPHENOLATE MOFETIL (CELLCEPT) [Concomitant]
     Indication: PROPHYLAXIS AGAINST TRANSPLANT REJECTION
  29. PROGRAF [Concomitant]
  30. ZOLOFT [Concomitant]
  31. PROAMATINE [Concomitant]
  32. FLONASE [Concomitant]
  33. HOMATROPINE [Concomitant]
  34. MAGNEVIST [Suspect]
     Indication: ANGIOGRAM
     Dosage: UNK
     Dates: start: 20020820, end: 20020820
  35. OMNISCAN [Suspect]
     Indication: ANGIOGRAM
  36. OPTIMARK [Suspect]
     Indication: NUCLEAR MAGNETIC RESONANCE IMAGING
  37. PROHANCE [Suspect]
     Indication: ANGIOGRAM
  38. EVISTA [Concomitant]
  39. ASPIRIN [Concomitant]
  40. INSULIN [Concomitant]
  41. PHOSLO [Concomitant]
  42. EVISTA [Concomitant]
  43. LORATADINE [Concomitant]
  44. SOLIVITO N [VIT C,VIT H,B12,B9,B3,PANTOTHENIC AC,B6,B2,B1 HCL] [Concomitant]
  45. MULTIHANCE [Suspect]
     Indication: NUCLEAR MAGNETIC RESONANCE IMAGING ABDOMINAL
     Route: 042
     Dates: start: 20050707, end: 20050707
  46. VISIPAQUE [Concomitant]
     Indication: AORTOGRAM
     Dates: start: 20050616, end: 20050616
  47. TEMAZEPAM [Concomitant]
  48. SYNTHROID [Concomitant]
  49. TRICOR [Concomitant]
  50. MIACALCIN [Concomitant]
  51. HUMALOG [Concomitant]
  52. PARICALCITOL [Concomitant]
  53. LIPITOR [Concomitant]
  54. RESTORIL [Concomitant]

REACTIONS (16)
  - SKIN TIGHTNESS [None]
  - MUSCULOSKELETAL STIFFNESS [None]
  - GRIEF REACTION [None]
  - EMOTIONAL DISTRESS [None]
  - SKIN DISCOLOURATION [None]
  - NEPHROGENIC SYSTEMIC FIBROSIS [None]
  - JOINT RANGE OF MOTION DECREASED [None]
  - ASTHENIA [None]
  - MUSCLE TIGHTNESS [None]
  - FIBROSIS [None]
  - ANXIETY [None]
  - FATIGUE [None]
  - OEDEMA PERIPHERAL [None]
  - PAIN [None]
  - QUALITY OF LIFE DECREASED [None]
  - MOBILITY DECREASED [None]
